FAERS Safety Report 6032201-3 (Version None)
Quarter: 2009Q1

REPORT INFORMATION
  Report Type: 
  Country: None (occurrence: None)
  Receive Date: 20090108
  Receipt Date: 20081230
  Transmission Date: 20090719
  Serious: Yes (Hospitalization)
  Sender: FDA-Public Use
  Company Number: CA-ROXANE LABORATORIES, INC.-2008-RO-00502RO

PATIENT
  Age: 45 Year
  Sex: Female

DRUGS (5)
  1. PREDNISONE TAB [Suspect]
     Indication: LEUKOCYTOCLASTIC VASCULITIS
     Dates: start: 20070515
  2. PREDNISONE TAB [Suspect]
     Route: 048
     Dates: start: 20070525, end: 20080606
  3. WARFARIN SODIUM [Suspect]
     Indication: DEEP VEIN THROMBOSIS
  4. CEPHALEXIN [Suspect]
     Indication: CELLULITIS
     Route: 048
     Dates: start: 20070512
  5. VITAMIN K TAB [Concomitant]
     Indication: INTERNATIONAL NORMALISED RATIO INCREASED
     Dosage: 1MG
     Route: 048
     Dates: start: 20070607

REACTIONS (3)
  - DRUG EFFECT INCREASED [None]
  - DRUG INTERACTION [None]
  - INTERNATIONAL NORMALISED RATIO INCREASED [None]
